FAERS Safety Report 10086653 (Version 1)
Quarter: 2014Q2

REPORT INFORMATION
  Report Type: Spontaneous
  Country: US (occurrence: None)
  Receive Date: 20140417
  Receipt Date: 20140417
  Transmission Date: 20141212
  Serious: Yes (Hospitalization)
  Sender: FDA-Public Use
  Company Number: None

PATIENT
  Age: 80 Year
  Sex: Male
  Weight: 92 kg

DRUGS (12)
  1. XARELTO [Suspect]
     Indication: ATRIAL FIBRILLATION
     Dosage: 1 TABLET QD ORAL
     Route: 048
     Dates: end: 20140406
  2. LANTUS [Concomitant]
  3. GLIMEPIRIDE [Concomitant]
  4. AMLODIPINE [Concomitant]
  5. FUROSEMIDE [Concomitant]
  6. FESO4 [Concomitant]
  7. PRAVASTATIN [Concomitant]
  8. JANUVIA [Concomitant]
  9. DIGOXIN [Concomitant]
  10. CARVEDILOL [Concomitant]
  11. LISINOPRIL [Concomitant]
  12. ALLOPURINOL [Concomitant]

REACTIONS (1)
  - Gastrointestinal haemorrhage [None]
